FAERS Safety Report 25762358 (Version 1)
Quarter: 2025Q3

REPORT INFORMATION
  Report Type: Spontaneous
  Country: US (occurrence: US)
  Receive Date: 20250904
  Receipt Date: 20250904
  Transmission Date: 20251021
  Serious: Yes (Other)
  Sender: BRISTOL-MYERS SQUIBB COMPANY
  Company Number: US-BRISTOL-MYERS SQUIBB COMPANY-2025-122408

PATIENT
  Age: 87 Year
  Sex: Female
  Weight: 55.79 kg

DRUGS (1)
  1. REVLIMID [Suspect]
     Active Substance: LENALIDOMIDE
     Indication: Plasma cell myeloma
     Dosage: DAILY FOR 14 DAYS AND 7 DAYS OFF
     Route: 048

REACTIONS (3)
  - Insomnia [Recovering/Resolving]
  - Vitamin B12 decreased [Recovering/Resolving]
  - Neuropathy peripheral [Recovering/Resolving]
